FAERS Safety Report 10399395 (Version 2)
Quarter: 2014Q3

REPORT INFORMATION
  Report Type: Spontaneous
  Country: US (occurrence: US)
  Receive Date: 20140821
  Receipt Date: 20140910
  Transmission Date: 20150326
  Serious: No
  Sender: FDA-Public Use
  Company Number: US-GILEAD-2014-0112656

PATIENT
  Age: 66 Year
  Sex: Female

DRUGS (3)
  1. LETAIRIS [Suspect]
     Active Substance: AMBRISENTAN
     Dosage: 5 MG, UNK
     Route: 065
     Dates: start: 20140824
  2. LETAIRIS [Suspect]
     Active Substance: AMBRISENTAN
     Dosage: 5 MG, UNK
     Dates: start: 20140416
  3. LETAIRIS [Suspect]
     Active Substance: AMBRISENTAN
     Indication: PRODUCT USED FOR UNKNOWN INDICATION
     Dosage: 10 MG, QD
     Route: 065
     Dates: start: 20140419

REACTIONS (2)
  - Headache [Recovering/Resolving]
  - Vomiting [Recovering/Resolving]
